FAERS Safety Report 6132854-5 (Version None)
Quarter: 2009Q1

REPORT INFORMATION
  Report Type: 
  Country: None (occurrence: None)
  Receive Date: 20090324
  Receipt Date: 20090324
  Transmission Date: 20090719
  Serious: No
  Sender: FDA-Public Use
  Company Number: None

PATIENT
  Age: 45 Year
  Sex: Male
  Weight: 80.29 kg

DRUGS (1)
  1. ATAZANAVIR [Suspect]
     Indication: HIV INFECTION
     Dosage: 300 MG EVERYDAY PO
     Route: 048
     Dates: start: 20061012, end: 20081204

REACTIONS (1)
  - HYPERBILIRUBINAEMIA [None]
